FAERS Safety Report 5332098-0 (Version None)
Quarter: 2007Q2

REPORT INFORMATION
  Report Type: 
  Country: None (occurrence: None)
  Receive Date: 20070523
  Receipt Date: 20070522
  Transmission Date: 20071010
  Serious: Yes (Hospitalization)
  Sender: FDA-Public Use
  Company Number: GB-BRISTOL-MYERS SQUIBB COMPANY-13663554

PATIENT
  Age: 49 Year
  Sex: Male

DRUGS (11)
  1. CISPLATIN [Suspect]
     Route: 042
     Dates: start: 20070121, end: 20070121
  2. ETOPOSIDE [Suspect]
     Route: 042
     Dates: start: 20070121, end: 20070121
  3. BLEOMYCIN [Suspect]
     Route: 042
     Dates: start: 20070118, end: 20070124
  4. FENTANYL TRANSDERMAL SYSTEM [Concomitant]
     Dates: start: 20070117
  5. AMITRIPTYLINE HCL [Concomitant]
     Dates: start: 20070122
  6. METOCLOPRAMIDE [Concomitant]
     Dates: start: 20070113
  7. PARACETAMOL [Concomitant]
     Dates: start: 20070111
  8. ALLOPURINOL [Concomitant]
     Dates: start: 20070112
  9. AMLODIPINE [Concomitant]
     Dates: start: 20070112
  10. DOCUSATE [Concomitant]
     Dates: start: 20070112
  11. THIAMINE [Concomitant]
     Dates: start: 20070111

REACTIONS (3)
  - FEBRILE NEUTROPENIA [None]
  - LOWER RESPIRATORY TRACT INFECTION [None]
  - PNEUMONITIS [None]
